FAERS Safety Report 14060515 (Version 1)
Quarter: 2017Q4

REPORT INFORMATION
  Report Type: Spontaneous
  Country: FR (occurrence: FR)
  Receive Date: 20171006
  Receipt Date: 20171006
  Transmission Date: 20180321
  Serious: Yes (Other)
  Sender: FDA-Public Use
  Company Number: FR-MERCK KGAA-2029210

PATIENT
  Age: 73 Year
  Sex: Female

DRUGS (2)
  1. NOVOTHYROX [Suspect]
     Active Substance: LEVOTHYROXINE SODIUM
     Indication: HYPERTHYROIDISM
     Route: 048
     Dates: start: 20170316
  2. THYROZOL [Suspect]
     Active Substance: METHIMAZOLE
     Route: 048
     Dates: start: 20170131

REACTIONS (8)
  - Diffuse alopecia [None]
  - Muscle spasms [None]
  - Vision blurred [None]
  - Tremor [None]
  - Fatigue [None]
  - Decreased appetite [None]
  - Arthralgia [None]
  - Balance disorder [None]

NARRATIVE: CASE EVENT DATE: 20170430
